FAERS Safety Report 8384977-8 (Version None)
Quarter: 2012Q2

REPORT INFORMATION
  Report Type: 
  Country: None (occurrence: None)
  Receive Date: 20120524
  Receipt Date: 20120515
  Transmission Date: 20120825
  Serious: Yes (Hospitalization)
  Sender: FDA-Public Use
  Company Number: CH-ROCHE-1070450

PATIENT
  Sex: Female
  Weight: 73 kg

DRUGS (1)
  1. XOLAIR [Suspect]
     Indication: ASTHMA
     Route: 058
     Dates: start: 20111122

REACTIONS (4)
  - FORCED EXPIRATORY VOLUME ABNORMAL [None]
  - COUGH [None]
  - DYSPNOEA [None]
  - ASTHMA [None]
